FAERS Safety Report 18360034 (Version 1)
Quarter: 2020Q4

REPORT INFORMATION
  Report Type: Spontaneous
  Country: FR (occurrence: FR)
  Receive Date: 20201008
  Receipt Date: 20201008
  Transmission Date: 20210114
  Serious: Yes (Hospitalization, Other)
  Sender: FDA-Public Use
  Company Number: FR-SA-2020SA243135

PATIENT

DRUGS (1)
  1. KEVZARA [Suspect]
     Active Substance: SARILUMAB
     Dosage: 1/2 WEEK
     Route: 058
     Dates: start: 20191205, end: 2020

REACTIONS (7)
  - Peritonitis [Recovering/Resolving]
  - Pleural effusion [Recovering/Resolving]
  - Abdominal pain [Recovering/Resolving]
  - Diverticulitis [Recovering/Resolving]
  - Pneumoperitoneum [Recovering/Resolving]
  - Pyrexia [Recovering/Resolving]
  - Diverticular perforation [Recovering/Resolving]

NARRATIVE: CASE EVENT DATE: 20200806
